FAERS Safety Report 10042001 (Version 4)
Quarter: 2014Q3

REPORT INFORMATION
  Report Type: Report from Study
  Country: US (occurrence: US)
  Receive Date: 20140327
  Receipt Date: 20140710
  Transmission Date: 20150326
  Serious: Yes (Hospitalization)
  Sender: FDA-Public Use
  Company Number: US-BRISTOL-MYERS SQUIBB COMPANY-20543609

PATIENT
  Age: 60 Year
  Sex: Female
  Weight: 57.96 kg

DRUGS (18)
  1. MULTIVITAMIN [Concomitant]
     Active Substance: VITAMINS
     Dates: start: 1994
  2. ALPHA-LIPOIC ACID [Concomitant]
     Dates: start: 2013
  3. ADVAIR HFA [Concomitant]
     Active Substance: FLUTICASONE PROPIONATE\SALMETEROL XINAFOATE
     Dates: start: 2004
  4. MAGNESIUM [Concomitant]
     Active Substance: MAGNESIUM
     Dates: start: 2013
  5. MANGANESE [Concomitant]
     Active Substance: MANGANESE\MANGANESE CHLORIDE
     Dates: start: 2013
  6. VITAMIN B COMPLEX [Concomitant]
     Active Substance: CYANOCOBALAMIN\DEXPANTHENOL\NIACINAMIDE\PYRIDOXINE HYDROCHLORIDE\RIBOFLAVIN 5^-PHOSPHATE SODIUM\THIAMINE HYDROCHLORIDE\VITAMIN B COMPLEX
     Dates: start: 1994
  7. ZINC [Concomitant]
     Active Substance: ZINC\ZINC CHLORIDE
     Dates: start: 2013
  8. IPILIMUMAB [Suspect]
     Active Substance: IPILIMUMAB
     Indication: OVARIAN CANCER
     Route: 042
     Dates: start: 20140122, end: 20140325
  9. PROBIOTICA [Concomitant]
     Active Substance: PROBIOTICS NOS
     Dates: start: 2011
  10. AZITHROMYCIN [Concomitant]
     Active Substance: AZITHROMYCIN ANHYDROUS
     Dates: start: 20140205, end: 20140310
  11. VITAMIN C [Concomitant]
     Active Substance: ASCORBIC ACID
     Dates: start: 2004
  12. CHROMIUM GTF [Concomitant]
     Dates: start: 2013
  13. SINGULAIR [Concomitant]
     Active Substance: MONTELUKAST SODIUM
     Dates: start: 2004
  14. CALCIUM [Concomitant]
     Active Substance: CALCIUM
     Dates: start: 1994
  15. NIACIN. [Concomitant]
     Active Substance: NIACIN
     Dates: start: 2013
  16. FISH OIL [Concomitant]
     Active Substance: FISH OIL
     Dates: start: 2004
  17. COPPER [Concomitant]
     Active Substance: COPPER
     Dates: start: 2013
  18. VITAMIN D [Concomitant]
     Active Substance: CHOLECALCIFEROL
     Dates: start: 2013

REACTIONS (1)
  - Hyponatraemia [Recovered/Resolved]

NARRATIVE: CASE EVENT DATE: 20140320
